FAERS Safety Report 12518537 (Version 1)
Quarter: 2016Q2

REPORT INFORMATION
  Report Type: Spontaneous
  Country: US (occurrence: US)
  Receive Date: 20160630
  Receipt Date: 20160630
  Transmission Date: 20160815
  Serious: No
  Sender: FDA-Public Use
  Company Number: US-GLAXOSMITHKLINE-US2016087284

PATIENT
  Age: 48 Year
  Sex: Male

DRUGS (1)
  1. TANZEUM [Suspect]
     Active Substance: ALBIGLUTIDE
     Indication: PRODUCT USED FOR UNKNOWN INDICATION
     Dosage: 50 MG, UNK
     Route: 058
     Dates: start: 20160616

REACTIONS (3)
  - Underdose [Unknown]
  - Device leakage [Unknown]
  - Product quality issue [Unknown]

NARRATIVE: CASE EVENT DATE: 20160616
